FAERS Safety Report 8585197-4 (Version None)
Quarter: 2012Q3

REPORT INFORMATION
  Report Type: 
  Country: None (occurrence: None)
  Receive Date: 20120810
  Receipt Date: 20120807
  Transmission Date: 20120928
  Serious: Yes (Other)
  Sender: FDA-Public Use
  Company Number: PHEH2012US011558

PATIENT
  Sex: Female
  Weight: 78.005 kg

DRUGS (8)
  1. BUSPAR [Concomitant]
     Dosage: 7.5 MG, TID
     Dates: start: 20100401
  2. BUSPIRON [Concomitant]
     Dosage: 7.5 MG, TID
     Route: 048
     Dates: start: 20111001
  3. EFFEXOR [Concomitant]
     Indication: DEPRESSION
     Dosage: 37.5 MG, TID
     Route: 048
     Dates: start: 20100401
  4. GILENYA [Suspect]
     Indication: MULTIPLE SCLEROSIS
     Dosage: 0.5 MG, QD
     Route: 048
     Dates: start: 20120606
  5. AMBIEN [Concomitant]
  6. COPLAXAR [Concomitant]
  7. VITAMINS NOS [Concomitant]
  8. FISH OIL [Concomitant]
     Dosage: 1000 MG, QD
     Route: 048

REACTIONS (6)
  - DIZZINESS [None]
  - FATIGUE [None]
  - NAUSEA [None]
  - DISTURBANCE IN ATTENTION [None]
  - SUICIDAL IDEATION [None]
  - INCREASED APPETITE [None]
